FAERS Safety Report 5861343-8 (Version None)
Quarter: 2008Q3

REPORT INFORMATION
  Report Type: 
  Country: None (occurrence: None)
  Receive Date: 20080827
  Receipt Date: 20080424
  Transmission Date: 20090109
  Serious: No
  Sender: FDA-Public Use
  Company Number: US-ABBOTT-08P-163-0448882-00

PATIENT
  Sex: Male
  Weight: 71.278 kg

DRUGS (4)
  1. NIASPAN [Suspect]
     Indication: BLOOD CHOLESTEROL INCREASED
     Route: 048
     Dates: end: 20080301
  2. NIASPAN [Suspect]
     Route: 048
     Dates: start: 20080301
  3. COATED PDS [Suspect]
     Indication: BLOOD CHOLESTEROL INCREASED
     Dates: start: 20080301
  4. ATORVASTATIN CALCIUM [Concomitant]
     Indication: BLOOD CHOLESTEROL INCREASED
     Route: 048

REACTIONS (3)
  - FLUSHING [None]
  - HOT FLUSH [None]
  - PAIN [None]
